FAERS Safety Report 8521693-3 (Version None)
Quarter: 2012Q3

REPORT INFORMATION
  Report Type: 
  Country: None (occurrence: None)
  Receive Date: 20120706
  Receipt Date: 20120625
  Transmission Date: 20120928
  Serious: No
  Sender: FDA-Public Use
  Company Number: 2012P1045974

PATIENT
  Age: 46 Year
  Sex: Male

DRUGS (13)
  1. QUETIAPINE [Suspect]
     Dosage: 25 MG;PRN; 100 MG;QD;
  2. ZOLPIDEM [Suspect]
     Dosage: 10 MG;QD;
  3. TRAZODONE HCL [Suspect]
     Dosage: 200 MG;QD;
  4. KETOROLAC (NO PREF. NAME) [Suspect]
     Indication: PREMEDICATION
     Dosage: 30 MG;
  5. TOPIRAMATE [Suspect]
     Indication: HEADACHE
     Dosage: 25 MG;BID;
  6. PRAZOSIN HCL [Suspect]
     Dosage: 5 MG;QD;
  7. SUCCINYLCHOLINE CHLORIDE [Suspect]
     Indication: PREMEDICATION
     Dosage: 0.2 MG/KG;
  8. METHOHEXITAL SODIUM (NO PREF. NAME) [Suspect]
     Indication: PREMEDICATION
     Dosage: 1.2 MG/KG;
  9. ONDANSETRON [Suspect]
     Indication: PREMEDICATION
     Dosage: 4 MG;
  10. GLYCOPYRROLATE [Suspect]
     Indication: ELECTROCONVULSIVE THERAPY
     Dosage: 0.2 MG;
  11. GLYCOPYRROLATE [Suspect]
     Indication: PREMEDICATION
     Dosage: 0.2 MG;
  12. SERTRALINE HYDROCHLORIDE [Suspect]
     Dosage: 200 MG;QD;
  13. MELOXICAM [Suspect]
     Indication: HEADACHE
     Dosage: 15 MG;QD;

REACTIONS (4)
  - ATRIAL FIBRILLATION [None]
  - SUPRAVENTRICULAR TACHYCARDIA [None]
  - DRUG INTERACTION [None]
  - AUTONOMIC NERVOUS SYSTEM IMBALANCE [None]
